FAERS Safety Report 7568387-9 (Version None)
Quarter: 2011Q2

REPORT INFORMATION
  Report Type: 
  Country: None (occurrence: None)
  Receive Date: 20110623
  Receipt Date: 20110614
  Transmission Date: 20111010
  Serious: Yes (Other)
  Sender: FDA-Public Use
  Company Number: B0726853A

PATIENT
  Sex: Male

DRUGS (1)
  1. BETNOVATE [Suspect]
     Route: 065

REACTIONS (2)
  - VASODILATATION [None]
  - SKIN ATROPHY [None]
